FAERS Safety Report 24542476 (Version 1)
Quarter: 2024Q4

REPORT INFORMATION
  Report Type: Report from Study
  Country: US (occurrence: US)
  Receive Date: 20241024
  Receipt Date: 20241024
  Transmission Date: 20250114
  Serious: No
  Sender: ROCHE
  Company Number: US-ROCHE-10000110616

PATIENT
  Age: 43 Year
  Sex: Female
  Weight: 49.9 kg

DRUGS (1)
  1. OCREVUS [Suspect]
     Active Substance: OCRELIZUMAB
     Indication: Multiple sclerosis
     Dosage: THEN 600 MG FOR EVERY 6 MONTHS
     Route: 042

REACTIONS (5)
  - Visual impairment [Unknown]
  - Demyelination [Unknown]
  - Arthralgia [Unknown]
  - Pain in extremity [Unknown]
  - CD19 lymphocytes decreased [Unknown]
